FAERS Safety Report 6478460-4 (Version None)
Quarter: 2009Q4

REPORT INFORMATION
  Report Type: 
  Country: None (occurrence: None)
  Receive Date: 20091202
  Receipt Date: 20091123
  Transmission Date: 20100525
  Serious: Yes (Other)
  Sender: FDA-Public Use
  Company Number: 442345

PATIENT
  Age: 56 Year
  Sex: Female

DRUGS (1)
  1. PACLITAXEL [Suspect]
     Dosage: 175 MG/M2, INTRAVENOUS
     Route: 042
     Dates: start: 20091120, end: 20091120

REACTIONS (3)
  - ANXIETY [None]
  - DYSPNOEA [None]
  - TACHYCARDIA [None]
